FAERS Safety Report 9834244 (Version 2)
Quarter: 2014Q2

REPORT INFORMATION
  Report Type: Spontaneous
  Country: DE (occurrence: DE)
  Receive Date: 20140122
  Receipt Date: 20140408
  Transmission Date: 20141212
  Serious: Yes (Other)
  Sender: FDA-Public Use
  Company Number: DE-BRISTOL-MYERS SQUIBB COMPANY-20039772

PATIENT
  Age: 75 Year
  Sex: Male

DRUGS (11)
  1. ELIQUIS [Suspect]
     Indication: ATRIAL FIBRILLATION
     Dosage: AT MORNING AND EVENING?REDUCED TO 2.5 MG TWICE DAILY
     Dates: start: 201309
  2. ASPIRIN [Suspect]
  3. PRADAXA [Concomitant]
  4. VITAMIN D3 [Concomitant]
  5. CALCIUM [Concomitant]
  6. PLAVIX [Concomitant]
  7. INEGY [Concomitant]
  8. INSPRA [Concomitant]
  9. METOPROLOL [Concomitant]
  10. OMEPRAZOLE [Concomitant]
  11. ALENDRONIC ACID [Concomitant]

REACTIONS (3)
  - Mouth haemorrhage [Recovered/Resolved]
  - Dizziness [Unknown]
  - Anxiety [Unknown]
